FAERS Safety Report 4468138-0 (Version None)
Quarter: 2004Q3

REPORT INFORMATION
  Report Type: 
  Country: None (occurrence: None)
  Receive Date: 20040917
  Receipt Date: 20040521
  Transmission Date: 20050211
  Serious: No
  Sender: FDA-Public Use
  Company Number: US-JNJFOC-20040505412

PATIENT
  Age: 24 Year
  Sex: Female
  Weight: 44.9061 kg

DRUGS (4)
  1. ORTHO EVRA [Suspect]
     Indication: CONTRACEPTION
     Dosage: 1 DOSE(S), 3 IN 4 WEEK, TRANSDERMAL
     Route: 062
  2. FOLIC ACID [Concomitant]
  3. IRON (IRON) [Concomitant]
  4. AULIMIL (ALL OTHER THERAPEUTIC PRODUCTS) [Concomitant]

REACTIONS (2)
  - APPLICATION SITE PHOTOSENSITIVITY REACTION [None]
  - APPLICATION SITE REACTION [None]
